FAERS Safety Report 22151789 (Version 1)
Quarter: 2023Q1

REPORT INFORMATION
  Report Type: Spontaneous
  Country: FR (occurrence: FR)
  Receive Date: 20230329
  Receipt Date: 20230329
  Transmission Date: 20230418
  Serious: Yes (Hospitalization)
  Sender: FDA-Public Use
  Company Number: None

PATIENT
  Age: 75 Year
  Sex: Female
  Weight: 79.5 kg

DRUGS (1)
  1. APIXABAN [Suspect]
     Active Substance: APIXABAN
     Indication: Atrial fibrillation
     Dosage: 10 MILLIGRAM (1-0-1)
     Route: 048

REACTIONS (2)
  - Shock haemorrhagic [Recovered/Resolved]
  - Retroperitoneal haematoma [Recovered/Resolved]

NARRATIVE: CASE EVENT DATE: 20221227
